FAERS Safety Report 18748052 (Version 1)
Quarter: 2021Q1

REPORT INFORMATION
  Report Type: Spontaneous
  Country: JP (occurrence: JP)
  Receive Date: 20210115
  Receipt Date: 20210115
  Transmission Date: 20210419
  Serious: Yes (Other)
  Sender: FDA-Public Use
  Company Number: JP-ASTRAZENECA-2021A003100

PATIENT
  Age: 60 Year
  Sex: Female

DRUGS (3)
  1. NEXIUM [Suspect]
     Active Substance: ESOMEPRAZOLE MAGNESIUM
     Dosage: DOSE UNKNOWN
     Route: 048
  2. URSO [Concomitant]
     Active Substance: URSODIOL
     Dosage: DOSE UNKNOWN
     Route: 065
  3. SUPLATAST TOSILATE [Suspect]
     Active Substance: SUPLATAST TOSILATE
     Indication: ASTHMA
     Dosage: DOSE UNKNOWN
     Route: 065

REACTIONS (2)
  - Hepatitis fulminant [Recovered/Resolved]
  - Drug-induced liver injury [Recovering/Resolving]
